FAERS Safety Report 8200340-4 (Version None)
Quarter: 2012Q1

REPORT INFORMATION
  Report Type: 
  Country: None (occurrence: None)
  Receive Date: 20120312
  Receipt Date: 20120306
  Transmission Date: 20120608
  Serious: Yes (Other)
  Sender: FDA-Public Use
  Company Number: BR-PFIZER INC-2012014204

PATIENT
  Age: 65 Year
  Sex: Male
  Weight: 85 kg

DRUGS (4)
  1. XALATAN [Suspect]
     Indication: GLAUCOMA
     Dosage: 3 UG (ONE DROP IN EACH EYE), 1X/DAY
     Route: 047
     Dates: start: 20020101
  2. ENALAPRIL [Suspect]
     Indication: HYPERTENSION
     Dosage: UNK
     Dates: start: 20100101
  3. ENALAPRIL [Suspect]
     Indication: BLOOD PRESSURE
  4. SIMVASTATIN [Suspect]
     Indication: BLOOD CHOLESTEROL
     Dosage: UNK
     Dates: start: 20070101

REACTIONS (1)
  - INTRAOCULAR PRESSURE INCREASED [None]
